FAERS Safety Report 21766794 (Version 2)
Quarter: 2022Q4

REPORT INFORMATION
  Report Type: Spontaneous
  Country: US (occurrence: US)
  Receive Date: 20221222
  Receipt Date: 20221228
  Transmission Date: 20230112
  Serious: Yes (Other)
  Sender: FDA-Public Use
  Company Number: US-PFIZER INC-202201387275

PATIENT
  Sex: Male

DRUGS (1)
  1. INLYTA [Suspect]
     Active Substance: AXITINIB
     Dosage: 20 MG, 2X/DAY

REACTIONS (6)
  - Diabetes mellitus [Unknown]
  - Cytomegalovirus infection [Unknown]
  - Pancreatic disorder [Unknown]
  - Blood glucose increased [Unknown]
  - Off label use [Unknown]
  - Blood glucose fluctuation [Unknown]
